FAERS Safety Report 16300344 (Version 3)
Quarter: 2019Q2

REPORT INFORMATION
  Report Type: Spontaneous
  Country: JP (occurrence: JP)
  Receive Date: 20190510
  Receipt Date: 20190614
  Transmission Date: 20190711
  Serious: Yes (Death)
  Sender: FDA-Public Use
  Company Number: JP-OTSUKA-2019_018134

PATIENT
  Age: 89 Year
  Sex: Female

DRUGS (6)
  1. ABILIFY MAINTENA [Suspect]
     Active Substance: ARIPIPRAZOLE
     Dosage: 300 MG, QM
     Route: 030
     Dates: start: 20180823, end: 20190218
  2. VANCOMYCIN [Suspect]
     Active Substance: VANCOMYCIN
     Indication: PNEUMONIA
     Dosage: 1 G, QD
     Route: 041
     Dates: start: 20190228, end: 20190303
  3. ABILIFY MAINTENA [Suspect]
     Active Substance: ARIPIPRAZOLE
     Indication: SCHIZOPHRENIA
     Dosage: 400 MG, QM
     Route: 030
     Dates: start: 20170126, end: 20180809
  4. CEFAZOLIN NA [Suspect]
     Active Substance: CEFAZOLIN SODIUM
     Indication: PNEUMONIA
     Dosage: 3 G, QD
     Route: 041
     Dates: start: 20190307, end: 20190311
  5. CEFTRIAXONE. [Suspect]
     Active Substance: CEFTRIAXONE
     Indication: PNEUMONIA
     Dosage: 2 G, QD
     Route: 041
     Dates: start: 20190116, end: 20190118
  6. CEFMETAZOLE [Suspect]
     Active Substance: CEFMETAZOLE
     Indication: PNEUMONIA
     Dosage: 2 G, QD
     Route: 041
     Dates: start: 20190108, end: 20190114

REACTIONS (2)
  - Pneumonia aspiration [Fatal]
  - Pneumonia [Fatal]

NARRATIVE: CASE EVENT DATE: 20180713
